FAERS Safety Report 17535604 (Version 1)
Quarter: 2020Q1

REPORT INFORMATION
  Report Type: Spontaneous
  Country: FR (occurrence: FR)
  Receive Date: 20200313
  Receipt Date: 20200313
  Transmission Date: 20200409
  Serious: Yes (Hospitalization)
  Sender: FDA-Public Use
  Company Number: FR-ROCHE-2566234

PATIENT
  Age: 64 Year
  Sex: Male
  Weight: 92 kg

DRUGS (15)
  1. VALIUM [Suspect]
     Active Substance: DIAZEPAM
     Indication: PRODUCT USED FOR UNKNOWN INDICATION
     Route: 048
     Dates: end: 20170706
  2. NOVORAPID [Concomitant]
     Active Substance: INSULIN ASPART
  3. TOUJEO [Concomitant]
     Active Substance: INSULIN GLARGINE
  4. ZOPICLONE [Concomitant]
     Active Substance: ZOPICLONE
  5. TRIMEBUTINE [Concomitant]
     Active Substance: TRIMEBUTINE
  6. INDAPAMIDE. [Suspect]
     Active Substance: INDAPAMIDE
     Indication: HYPERTENSION
     Route: 048
     Dates: end: 20170706
  7. OLANZAPINE. [Concomitant]
     Active Substance: OLANZAPINE
  8. PANTOPRAZOLE [Concomitant]
     Active Substance: PANTOPRAZOLE
  9. ATORVASTATINE [ATORVASTATIN] [Concomitant]
     Active Substance: ATORVASTATIN
  10. PERMIXON [Concomitant]
     Active Substance: HERBALS\SAW PALMETTO
  11. PERINDOPRIL [Concomitant]
     Active Substance: PERINDOPRIL
  12. ACTISKENAN [Suspect]
     Active Substance: MORPHINE SULFATE
     Indication: PRODUCT USED FOR UNKNOWN INDICATION
     Route: 048
     Dates: end: 20170706
  13. BISOPROLOL [Concomitant]
     Active Substance: BISOPROLOL
  14. METFORMINE [METFORMIN] [Suspect]
     Active Substance: METFORMIN HYDROCHLORIDE
     Indication: TYPE 2 DIABETES MELLITUS
     Route: 048
     Dates: end: 20170708
  15. TRULICITY [Concomitant]
     Active Substance: DULAGLUTIDE

REACTIONS (1)
  - Diarrhoea [Recovered/Resolved]

NARRATIVE: CASE EVENT DATE: 20170701
